FAERS Safety Report 5824069-2 (Version None)
Quarter: 2008Q3

REPORT INFORMATION
  Report Type: 
  Country: None (occurrence: None)
  Receive Date: 20080728
  Receipt Date: 20080717
  Transmission Date: 20090109
  Serious: Yes (Other)
  Sender: FDA-Public Use
  Company Number: US-TYCO HEALTHCARE/MALLINCKRODT-T200801206

PATIENT

DRUGS (1)
  1. OPTIMARK IN PLASTIC SYRINGES [Suspect]
     Indication: SCAN
     Dosage: UNK, SINGLE
     Dates: start: 20060619, end: 20060619

REACTIONS (1)
  - NEPHROGENIC SYSTEMIC FIBROSIS [None]
